FAERS Safety Report 20264874 (Version 1)
Quarter: 2021Q4

REPORT INFORMATION
  Report Type: Spontaneous
  Country: US (occurrence: None)
  Receive Date: 20211230
  Receipt Date: 20211230
  Transmission Date: 20220303
  Serious: Yes (Death)
  Sender: FDA-Public Use
  Company Number: None

PATIENT
  Sex: Male

DRUGS (13)
  1. XOLAIR [Suspect]
     Active Substance: OMALIZUMAB
     Indication: Urticaria
     Dosage: INJECT 300MG UNDER THE SKIN (SUBCUTANEOUS INJECTION) ONCE A MONTH
     Route: 058
     Dates: start: 20211210
  2. AMMONIUM LAC CRE [Concomitant]
  3. AZOPT SUS [Concomitant]
  4. CLOBETASOL [Concomitant]
     Active Substance: CLOBETASOL
  5. DOXYCYCLINE HYCLATE [Concomitant]
     Active Substance: DOXYCYCLINE HYCLATE
  6. ELIQUIS [Concomitant]
  7. JANUVIA [Concomitant]
     Active Substance: SITAGLIPTIN PHOSPHATE
  8. LASIX [Concomitant]
  9. METOPROL TAR [Concomitant]
  10. OXYBUTYNIN [Concomitant]
     Active Substance: OXYBUTYNIN
  11. PREDNISONE [Concomitant]
     Active Substance: PREDNISONE
  12. PROTONIX [Concomitant]
     Active Substance: PANTOPRAZOLE SODIUM
  13. TRIAMCINOLONE ACETONIDE [Concomitant]
     Active Substance: TRIAMCINOLONE ACETONIDE

REACTIONS (1)
  - Death [None]
